FAERS Safety Report 8514388-3 (Version None)
Quarter: 2012Q3

REPORT INFORMATION
  Report Type: 
  Country: None (occurrence: None)
  Receive Date: 20120717
  Receipt Date: 20120712
  Transmission Date: 20120928
  Serious: Yes (Hospitalization)
  Sender: FDA-Public Use
  Company Number: US-BAYER-2012-070534

PATIENT
  Age: 38 Year
  Sex: Female
  Weight: 97.51 kg

DRUGS (6)
  1. TOPAMAX [Concomitant]
  2. ADVAIR DISKUS 100/50 [Concomitant]
     Indication: ASTHMA
  3. MEDROL [Concomitant]
     Indication: ASTHMA
  4. YAZ [Suspect]
     Indication: MENORRHAGIA
     Dosage: UNK
     Dates: end: 20100701
  5. YASMIN [Suspect]
  6. ZITHROMAX [Concomitant]

REACTIONS (3)
  - DEEP VEIN THROMBOSIS [None]
  - PULMONARY INFARCTION [None]
  - PULMONARY EMBOLISM [None]
